FAERS Safety Report 11004681 (Version 1)
Quarter: 2015Q2

REPORT INFORMATION
  Report Type: Report from Study
  Country: US (occurrence: US)
  Receive Date: 20150409
  Receipt Date: 20150409
  Transmission Date: 20150821
  Serious: Yes (Hospitalization)
  Sender: FDA-Public Use
  Company Number: US-ACTELION-A-US2014-108486

PATIENT
  Age: 29 Year
  Sex: Female

DRUGS (6)
  1. VELETRI [Suspect]
     Active Substance: EPOPROSTENOL
     Indication: PULMONARY ARTERIAL HYPERTENSION
     Dosage: 3 NG/KG, PER MIN
     Route: 042
     Dates: start: 20141107
  2. VELETRI [Suspect]
     Active Substance: EPOPROSTENOL
     Dosage: 13 NG/KG, UNK
     Route: 042
  3. ADCIRCA [Concomitant]
     Active Substance: TADALAFIL
     Dosage: 40 MG, QD
     Dates: start: 20141016
  4. VELETRI [Suspect]
     Active Substance: EPOPROSTENOL
     Dosage: 8 NG/KG, UNK
     Route: 042
  5. OXYGEN. [Concomitant]
     Active Substance: OXYGEN
     Dosage: 3 L/MIN, UNK
     Dates: start: 20140808
  6. HEPARIN [Concomitant]
     Active Substance: HEPARIN SODIUM

REACTIONS (18)
  - Dialysis [Unknown]
  - Migraine [Unknown]
  - Hypertension [Unknown]
  - Headache [Unknown]
  - Myalgia [Unknown]
  - Diarrhoea [Unknown]
  - Pain in jaw [Unknown]
  - Epistaxis [Unknown]
  - Musculoskeletal pain [Unknown]
  - Catheter site pain [Unknown]
  - Catheter site erythema [Unknown]
  - Back pain [Unknown]
  - Condition aggravated [Unknown]
  - Nausea [Unknown]
  - Catheter site scab [Unknown]
  - Catheter site pruritus [Unknown]
  - Pain [Unknown]
  - Skin abrasion [Unknown]
